FAERS Safety Report 21795347 (Version 1)
Quarter: 2022Q4

REPORT INFORMATION
  Report Type: Spontaneous
  Country: CN (occurrence: CN)
  Receive Date: 20221229
  Receipt Date: 20221229
  Transmission Date: 20230113
  Serious: Yes (Hospitalization, Other)
  Sender: FDA-Public Use
  Company Number: CN-TAKEDA-2022TUS102281

PATIENT
  Age: 51 Year
  Sex: Male
  Weight: 90 kg

DRUGS (1)
  1. ALBUMIN HUMAN [Suspect]
     Active Substance: ALBUMIN HUMAN
     Indication: Hypoproteinaemia
     Dosage: 10 GRAM, QD
     Route: 041
     Dates: start: 20221214, end: 20221219

REACTIONS (5)
  - Chest discomfort [Recovering/Resolving]
  - Sensory loss [Recovering/Resolving]
  - Pruritus [Recovering/Resolving]
  - Rash [Recovering/Resolving]
  - Dyspnoea [Recovering/Resolving]

NARRATIVE: CASE EVENT DATE: 20221219
